FAERS Safety Report 7232950-5 (Version None)
Quarter: 2011Q1

REPORT INFORMATION
  Report Type: 
  Country: None (occurrence: None)
  Receive Date: 20110119
  Receipt Date: 20110106
  Transmission Date: 20110831
  Serious: Yes (Hospitalization)
  Sender: FDA-Public Use
  Company Number: FR-ELI_LILLY_AND_COMPANY-FR201101001379

PATIENT
  Sex: Male

DRUGS (6)
  1. GEMZAR [Suspect]
     Route: 042
     Dates: start: 20100621
  2. PACLITAXEL [Concomitant]
     Dosage: 400 MG, UNKNOWN
     Route: 065
  3. CARBOPLATIN [Concomitant]
     Indication: ADENOCARCINOMA
     Dosage: 480 MG, UNK
     Route: 042
     Dates: start: 20100601
  4. GEMZAR [Suspect]
     Indication: ADENOCARCINOMA
     Route: 042
     Dates: start: 20100601
  5. CARBOPLATIN [Concomitant]
     Dosage: 550 MG, UNK
     Dates: start: 20100621
  6. GEMZAR [Suspect]
     Route: 042
     Dates: start: 20100609

REACTIONS (2)
  - CYTOLYTIC HEPATITIS [None]
  - CHOLESTASIS [None]
